FAERS Safety Report 6439860-1 (Version None)
Quarter: 2009Q4

REPORT INFORMATION
  Report Type: 
  Country: None (occurrence: None)
  Receive Date: 20091113
  Receipt Date: 20091111
  Transmission Date: 20100525
  Serious: Yes (Hospitalization)
  Sender: FDA-Public Use
  Company Number: US-BRISTOL-MYERS SQUIBB COMPANY-14841928

PATIENT
  Age: 72 Year
  Sex: Male
  Weight: 72 kg

DRUGS (4)
  1. ERBITUX [Suspect]
     Indication: OESOPHAGEAL CARCINOMA
     Dates: start: 20090915, end: 20091020
  2. CISPLATIN [Suspect]
     Indication: OESOPHAGEAL CARCINOMA
     Dates: start: 20090915, end: 20091020
  3. TAXOL [Suspect]
     Indication: OESOPHAGEAL CARCINOMA
     Dates: start: 20090915, end: 20091020
  4. RADIATION THERAPY [Suspect]
     Indication: OESOPHAGEAL CARCINOMA
     Dosage: 1 D.F=5040 GY NUMBER OF FRACTIONS:28 NUMBER OF ELASPSED DAYS:9
     Dates: start: 20090915, end: 20091023

REACTIONS (3)
  - DECREASED APPETITE [None]
  - NAUSEA [None]
  - OESOPHAGITIS [None]
